FAERS Safety Report 6054922-9 (Version None)
Quarter: 2009Q1

REPORT INFORMATION
  Report Type: 
  Country: None (occurrence: None)
  Receive Date: 20090128
  Receipt Date: 20090120
  Transmission Date: 20090719
  Serious: Yes (Other)
  Sender: FDA-Public Use
  Company Number: PHEH2008US10114

PATIENT
  Sex: Female

DRUGS (2)
  1. GENTEAL LUBRICANT EYE DROPS (NVO) [Suspect]
  2. ZYLET [Suspect]
     Dosage: UNK, UNK
     Dates: start: 20081110, end: 20081111

REACTIONS (11)
  - BLOOD PRESSURE INCREASED [None]
  - CHEST DISCOMFORT [None]
  - CONJUNCTIVITIS ALLERGIC [None]
  - DRUG HYPERSENSITIVITY [None]
  - EYE INFLAMMATION [None]
  - EYE IRRITATION [None]
  - EYE PRURITUS [None]
  - EYE SWELLING [None]
  - FOREIGN BODY SENSATION IN EYES [None]
  - HEADACHE [None]
  - OXYGEN SATURATION DECREASED [None]
